FAERS Safety Report 18736912 (Version 1)
Quarter: 2021Q1

REPORT INFORMATION
  Report Type: Spontaneous
  Country: US (occurrence: US)
  Receive Date: 20210113
  Receipt Date: 20210113
  Transmission Date: 20210419
  Serious: Yes (Life-Threatening, Hospitalization)
  Sender: FDA-Public Use
  Company Number: US-MYLANLABS-2021M1002155

PATIENT
  Age: 17 Year
  Sex: Male
  Weight: 84 kg

DRUGS (13)
  1. MAGNESIUM [Concomitant]
     Active Substance: MAGNESIUM
     Indication: PRODUCT USED FOR UNKNOWN INDICATION
     Route: 065
  2. NOREPINEPHRINE. [Concomitant]
     Active Substance: NOREPINEPHRINE
     Indication: CARDIAC ARREST
     Route: 065
  3. INSULIN [Concomitant]
     Active Substance: INSULIN NOS
     Indication: CARDIOGENIC SHOCK
     Dosage: 2 INTERNATIONAL UNIT/KILOGRAM,2 UNIT/KG BOLUS (170 UNITS REGULAR INSULIN) INFUSION
  4. MORPHINE [Suspect]
     Active Substance: MORPHINE
     Indication: PRODUCT USED FOR UNKNOWN INDICATION
     Route: 065
  5. INSULIN [Concomitant]
     Active Substance: INSULIN NOS
     Dosage: 2 INTERNATIONAL UNIT/KILOGRAM, QH, INFUSION
  6. VASOPRESSIN. [Concomitant]
     Active Substance: VASOPRESSIN
     Indication: CARDIAC ARREST
     Route: 065
  7. NITRIC OXIDE. [Concomitant]
     Active Substance: NITRIC OXIDE
     Indication: PRODUCT USED FOR UNKNOWN INDICATION
     Route: 065
  8. INSULIN [Concomitant]
     Active Substance: INSULIN NOS
     Dosage: 3 INTERNATIONAL UNIT/KILOGRAM, QH, INFUSION
  9. DOPAMINE [Concomitant]
     Active Substance: DOPAMINE HYDROCHLORIDE
     Indication: CARDIAC ARREST
     Route: 065
  10. MILRINONE [Suspect]
     Active Substance: MILRINONE
     Indication: CARDIAC ARREST
     Route: 065
  11. NALOXONE [Concomitant]
     Active Substance: NALOXONE
     Indication: UNRESPONSIVE TO STIMULI
     Route: 065
  12. SODIUM BICARBONATE. [Concomitant]
     Active Substance: SODIUM BICARBONATE
     Indication: PRODUCT USED FOR UNKNOWN INDICATION
     Route: 065
  13. EPINEPHRINE. [Suspect]
     Active Substance: EPINEPHRINE
     Indication: CARDIAC ARREST
     Route: 065

REACTIONS (11)
  - Unresponsive to stimuli [Recovered/Resolved]
  - Hypoxia [Recovered/Resolved]
  - Cardiogenic shock [Recovered/Resolved]
  - Cardiac arrest [Recovered/Resolved]
  - Overdose [Recovered/Resolved]
  - Drug abuse [Recovered/Resolved]
  - Bradypnoea [Recovered/Resolved]
  - Drug ineffective [Unknown]
  - Hypercapnia [Recovered/Resolved]
  - Bradycardia [Recovered/Resolved]
  - Systolic dysfunction [Recovered/Resolved]
